FAERS Safety Report 16287284 (Version 1)
Quarter: 2019Q2

REPORT INFORMATION
  Report Type: Spontaneous
  Country: US (occurrence: US)
  Receive Date: 20190508
  Receipt Date: 20190508
  Transmission Date: 20190711
  Serious: Yes (Other)
  Sender: FDA-Public Use
  Company Number: US-NOVOPROD-629170

PATIENT
  Age: 5 Year
  Sex: Female

DRUGS (5)
  1. NORDITROPIN [Suspect]
     Active Substance: SOMATROPIN
     Dosage: 7 MG, UNK
     Route: 058
     Dates: start: 2018
  2. NORDITROPIN [Suspect]
     Active Substance: SOMATROPIN
     Indication: GROWTH HORMONE DEFICIENCY
     Dosage: 7 MG, UNK
     Route: 058
     Dates: start: 20180820, end: 2018
  3. NORDITROPIN [Suspect]
     Active Substance: SOMATROPIN
     Dosage: AROUND 6 MG OR 6.5 MG
     Route: 058
     Dates: start: 2018, end: 2018
  4. NORDITROPIN [Suspect]
     Active Substance: SOMATROPIN
     Dosage: 5.5 MG, UNK
     Route: 058
     Dates: start: 2018, end: 2018
  5. NORDITROPIN [Suspect]
     Active Substance: SOMATROPIN
     Dosage: DOSE DECREASED
     Route: 058
     Dates: start: 2018, end: 2018

REACTIONS (3)
  - Intracranial pressure increased [Recovering/Resolving]
  - Eye pain [Recovering/Resolving]
  - Motion sickness [Unknown]

NARRATIVE: CASE EVENT DATE: 2018
